FAERS Safety Report 11859567 (Version 1)
Quarter: 2015Q4

REPORT INFORMATION
  Report Type: Spontaneous
  Country: US (occurrence: US)
  Receive Date: 20151221
  Receipt Date: 20151221
  Transmission Date: 20160305
  Serious: No
  Sender: FDA-Public Use
  Company Number: CHPA2015US015151

PATIENT
  Sex: Female

DRUGS (1)
  1. VOLTAREN [Suspect]
     Active Substance: DICLOFENAC SODIUM
     Indication: BACK PAIN
     Dosage: QUARTER SIZE
     Route: 061
     Dates: start: 20151221

REACTIONS (6)
  - Drug administered at inappropriate site [Unknown]
  - Hypoaesthesia [Unknown]
  - Paraesthesia [Unknown]
  - Product use issue [Unknown]
  - Wrong technique in product usage process [Unknown]
  - Pain in extremity [Unknown]

NARRATIVE: CASE EVENT DATE: 20151221
